FAERS Safety Report 16160732 (Version 1)
Quarter: 2019Q2

REPORT INFORMATION
  Report Type: Spontaneous
  Country: DE (occurrence: DE)
  Receive Date: 20190405
  Receipt Date: 20190405
  Transmission Date: 20190711
  Serious: Yes (Hospitalization)
  Sender: FDA-Public Use
  Company Number: PHHY2019DE075727

PATIENT
  Age: 48 Year
  Sex: Female
  Weight: 74 kg

DRUGS (9)
  1. SAR 650984 [Suspect]
     Active Substance: ISATUXIMAB
     Dosage: 730 MG, QD
     Route: 042
     Dates: start: 20180807, end: 20180807
  2. CARFILZOMIB [Suspect]
     Active Substance: CARFILZOMIB
     Dosage: 66.6 MG, QD
     Route: 042
     Dates: start: 20180815, end: 20180815
  3. FRAGMIN P [Concomitant]
     Active Substance: DALTEPARIN SODIUM
     Indication: THROMBOSIS PROPHYLAXIS
     Dosage: UNK UNK, QD (500 IE)
     Route: 065
     Dates: start: 20180710, end: 20180818
  4. CARFILZOMIB [Suspect]
     Active Substance: CARFILZOMIB
     Indication: PLASMA CELL MYELOMA
     Dosage: 66.6 MG, QD
     Route: 042
     Dates: start: 20180710, end: 20180710
  5. LENALIDOMIDE [Suspect]
     Active Substance: LENALIDOMIDE
     Dosage: 25 MG, QD
     Route: 048
     Dates: start: 20180819, end: 20180819
  6. SAR 650984 [Suspect]
     Active Substance: ISATUXIMAB
     Indication: PLASMA CELL MYELOMA
     Dosage: 730 MG, QD
     Route: 042
     Dates: start: 20180710, end: 20180710
  7. DEXAMETHASONE. [Suspect]
     Active Substance: DEXAMETHASONE
     Indication: PLASMA CELL MYELOMA
     Dosage: 40 MG, QD
     Route: 042
     Dates: start: 20180710, end: 20180710
  8. DEXAMETHASONE. [Suspect]
     Active Substance: DEXAMETHASONE
     Dosage: 40 MG, QD
     Route: 042
     Dates: start: 20180814, end: 20180814
  9. LENALIDOMIDE [Suspect]
     Active Substance: LENALIDOMIDE
     Indication: PLASMA CELL MYELOMA
     Dosage: 25 MG, QD
     Route: 048
     Dates: start: 20180710, end: 20180710

REACTIONS (1)
  - Pulmonary embolism [Recovered/Resolved]

NARRATIVE: CASE EVENT DATE: 20180819
